FAERS Safety Report 7946921-4 (Version None)
Quarter: 2011Q4

REPORT INFORMATION
  Report Type: 
  Country: None (occurrence: None)
  Receive Date: 20111129
  Receipt Date: 20111121
  Transmission Date: 20120403
  Serious: Yes (Hospitalization)
  Sender: FDA-Public Use
  Company Number: US-ASTRAZENECA-2010SE58364

PATIENT
  Age: 58 Year
  Sex: Female

DRUGS (1)
  1. NEXIUM [Suspect]
     Route: 048

REACTIONS (7)
  - BREAST DISORDER [None]
  - RHEUMATOID ARTHRITIS [None]
  - LIVER DISORDER [None]
  - GASTRIC POLYPS [None]
  - HEPATITIS C [None]
  - NEUROPATHY PERIPHERAL [None]
  - ASTHMA [None]
